FAERS Safety Report 4405694-2 (Version None)
Quarter: 2004Q3

REPORT INFORMATION
  Report Type: 
  Country: None (occurrence: None)
  Receive Date: 20040723
  Receipt Date: 20031117
  Transmission Date: 20050211
  Serious: No
  Sender: FDA-Public Use
  Company Number: US-GLAXOSMITHKLINE-A0439999A

PATIENT
  Sex: Male

DRUGS (4)
  1. AVANDIA [Suspect]
     Dosage: 8MG PER DAY
     Route: 048
  2. DIURETIC [Concomitant]
  3. OXYPAN [Concomitant]
  4. LISINOPRIL [Concomitant]

REACTIONS (1)
  - PAIN IN EXTREMITY [None]
